FAERS Safety Report 6611764-0 (Version None)
Quarter: 2010Q1

REPORT INFORMATION
  Report Type: 
  Country: None (occurrence: None)
  Receive Date: 20100303
  Receipt Date: 20100224
  Transmission Date: 20100710
  Serious: Yes (Other)
  Sender: FDA-Public Use
  Company Number: US-ROCHE-654352

PATIENT
  Sex: Male
  Weight: 104.3 kg

DRUGS (3)
  1. PEGASYS [Suspect]
     Indication: HEPATITIS C
     Dosage: PRE-FILLED SYRINGE
     Route: 065
     Dates: start: 20090201
  2. COPEGUS [Suspect]
     Indication: HEPATITIS C
     Dosage: DIVIDED DOSES.
     Route: 065
     Dates: start: 20090201
  3. OXYCODONE HCL [Concomitant]
     Dates: end: 20090601

REACTIONS (8)
  - DEPRESSION [None]
  - FATIGUE [None]
  - IRRITABILITY [None]
  - NO ADVERSE EVENT [None]
  - POOR QUALITY DRUG ADMINISTERED [None]
  - STOMATITIS [None]
  - TONGUE ULCERATION [None]
  - VIOLENCE-RELATED SYMPTOM [None]
